FAERS Safety Report 7482006-1 (Version None)
Quarter: 2011Q2

REPORT INFORMATION
  Report Type: 
  Country: None (occurrence: None)
  Receive Date: 20110516
  Receipt Date: 20110505
  Transmission Date: 20111010
  Serious: Yes (Death)
  Sender: FDA-Public Use
  Company Number: US-JNJFOC-20110106742

PATIENT
  Age: 37 Year
  Sex: Female
  Weight: 72.58 kg

DRUGS (1)
  1. FENTANYL-100 [Suspect]
     Indication: PAIN
     Route: 062
     Dates: start: 20070501, end: 20071201

REACTIONS (1)
  - TOXICITY TO VARIOUS AGENTS [None]
